FAERS Safety Report 7209635-4 (Version None)
Quarter: 2011Q1

REPORT INFORMATION
  Report Type: 
  Country: None (occurrence: None)
  Receive Date: 20110103
  Receipt Date: 20110103
  Transmission Date: 20110831
  Serious: No
  Sender: FDA-Public Use
  Company Number: None

PATIENT
  Age: 46 Year
  Sex: Female
  Weight: 68.0396 kg

DRUGS (2)
  1. CYMBALTA [Suspect]
     Indication: ANXIETY
     Dosage: 1 A DAY PO
     Route: 048
     Dates: start: 20100828, end: 20101230
  2. CYMBALTA [Suspect]
     Indication: DEPRESSION
     Dosage: 1 A DAY PO
     Route: 048
     Dates: start: 20100828, end: 20101230

REACTIONS (4)
  - DIARRHOEA [None]
  - DIZZINESS [None]
  - NAUSEA [None]
  - HYPERTENSION [None]
